FAERS Safety Report 4562780-4 (Version None)
Quarter: 2005Q1

REPORT INFORMATION
  Report Type: 
  Country: None (occurrence: None)
  Receive Date: 20050121
  Receipt Date: 20050104
  Transmission Date: 20050727
  Serious: Yes (Disabling)
  Sender: FDA-Public Use
  Company Number: 2004AP06004

PATIENT
  Age: 51 Year
  Sex: Male
  Weight: 60 kg

DRUGS (4)
  1. IRESSA [Suspect]
     Indication: NON-SMALL CELL LUNG CANCER
     Dosage: 250 MG DAILY; PO
     Route: 048
     Dates: start: 20041010, end: 20041123
  2. AVIL [Concomitant]
  3. ALLERGEN [Concomitant]
  4. BRONCHOPHEN [Concomitant]

REACTIONS (3)
  - CHROMATURIA [None]
  - JAUNDICE [None]
  - PRURITUS [None]
